FAERS Safety Report 14785008 (Version 2)
Quarter: 2018Q2

REPORT INFORMATION
  Report Type: Spontaneous
  Country: RO (occurrence: RO)
  Receive Date: 20180420
  Receipt Date: 20180430
  Transmission Date: 20180711
  Serious: Yes (Death, Hospitalization, Other)
  Sender: FDA-Public Use
  Company Number: RO-GILEAD-2018-0333685

PATIENT
  Age: 54 Year
  Sex: Male

DRUGS (5)
  1. HARVONI [Suspect]
     Active Substance: LEDIPASVIR\SOFOSBUVIR
     Indication: HEPATITIS C
     Dosage: 1 DF, QD
     Route: 048
     Dates: start: 20180201
  2. LAGOSA [Concomitant]
  3. HARVONI [Suspect]
     Active Substance: LEDIPASVIR\SOFOSBUVIR
     Indication: HEPATIC CIRRHOSIS
  4. RIBAVIRIN. [Concomitant]
     Active Substance: RIBAVIRIN
     Dosage: 200 MG, TID
     Route: 048
     Dates: start: 20180201
  5. PROPRANOLOL [Concomitant]
     Active Substance: PROPRANOLOL HYDROCHLORIDE
     Dosage: 40 MG, QD
     Route: 048

REACTIONS (5)
  - Shock haemorrhagic [Fatal]
  - Upper gastrointestinal haemorrhage [Fatal]
  - Haematemesis [Fatal]
  - Oesophageal varices haemorrhage [Fatal]
  - Melaena [Fatal]
